FAERS Safety Report 10089579 (Version 1)
Quarter: 2014Q2

REPORT INFORMATION
  Report Type: Spontaneous
  Country: US (occurrence: US)
  Receive Date: 20140421
  Receipt Date: 20140421
  Transmission Date: 20141212
  Serious: Yes (Other)
  Sender: FDA-Public Use
  Company Number: US-PFIZER INC-2014108638

PATIENT
  Age: 77 Year
  Sex: Female

DRUGS (2)
  1. XELJANZ [Suspect]
     Dosage: 5 MG, 2X/DAY
     Route: 048
  2. HYDROCHLOROTHIAZIDE/LOSARTAN POTASSIUM [Suspect]
     Dosage: LOSARTAN 50 MG/HYDROCHLOROTHIAZIDE 12.5 MG

REACTIONS (2)
  - Hepatic enzyme increased [Unknown]
  - Oedema [Unknown]
